FAERS Safety Report 8885679 (Version 1)
Quarter: 2012Q4

REPORT INFORMATION
  Report Type: 
  Country: US (occurrence: US)
  Receive Date: 20121101
  Receipt Date: 20121101
  Transmission Date: 20130627
  Serious: No
  Sender: FDA-Public Use
  Company Number: US-PFIZER INC-2012268418

PATIENT
  Age: 52 Year
  Sex: Female

DRUGS (8)
  1. LIPITOR [Suspect]
     Dosage: UNK
  2. CODEINE [Suspect]
     Dosage: UNK
  3. METFORMIN [Suspect]
     Dosage: UNK
  4. METHADONE [Suspect]
     Dosage: UNK
  5. RED YEAST [Suspect]
     Dosage: UNK
  6. SIMVASTATIN [Suspect]
     Dosage: UNK
  7. TRAMADOL [Suspect]
     Dosage: UNK
  8. VALTREX [Suspect]
     Dosage: UNK

REACTIONS (1)
  - Drug hypersensitivity [Unknown]
